FAERS Safety Report 5331690-7 (Version None)
Quarter: 2007Q2

REPORT INFORMATION
  Report Type: 
  Country: None (occurrence: None)
  Receive Date: 20070516
  Receipt Date: 20070503
  Transmission Date: 20071010
  Serious: Yes (Other)
  Sender: FDA-Public Use
  Company Number: MC200700331

PATIENT
  Age: 76 Year
  Sex: Male

DRUGS (2)
  1. ANGIOMAX [Suspect]
     Indication: HEPARIN-INDUCED THROMBOCYTOPENIA
     Dosage: 0.21 MG/KG, HR (MEAN INITIATION DOSE), INTRAVENOUS 0.2 MG/KG, HR (MAINTAINED MEAN DOSE), INTRAVENOUS
     Route: 042
  2. HEPARIN [Concomitant]

REACTIONS (1)
  - GASTROINTESTINAL HAEMORRHAGE [None]
